FAERS Safety Report 9157467 (Version 2)
Quarter: 2013Q1

REPORT INFORMATION
  Report Type: Spontaneous
  Country: FR (occurrence: FR)
  Receive Date: 20130312
  Receipt Date: 20130318
  Transmission Date: 20140127
  Serious: Yes (Hospitalization, Other)
  Sender: FDA-Public Use
  Company Number: FR-PFIZER INC-2013078579

PATIENT
  Age: 84 Year
  Sex: Male

DRUGS (10)
  1. LYRICA [Suspect]
     Dosage: 150 MG, 2X/DAY
     Route: 048
     Dates: end: 20121120
  2. LYRICA [Suspect]
     Dosage: 200 MG, 2X/DAY
     Route: 048
     Dates: start: 20121120, end: 20121122
  3. DUROGESIC [Suspect]
     Dosage: 1 DF (12 UG/H), 1X/DAY
     Route: 062
     Dates: start: 20121120, end: 20121122
  4. THERALENE [Suspect]
     Dosage: 50 GTT, SINGLE
     Route: 048
     Dates: start: 20121122, end: 20121122
  5. IMOVANE [Suspect]
     Dosage: UNK
     Route: 048
     Dates: start: 20121120, end: 20121122
  6. ACEBUTOLOL [Concomitant]
     Dosage: 200 MG, 2X/DAY
     Route: 048
  7. TAREG [Concomitant]
     Dosage: 80 MG, 1X/DAY
     Route: 048
     Dates: end: 20121130
  8. TAHOR [Concomitant]
     Dosage: 40 MG, 1X/DAY
     Dates: end: 20121130
  9. LASILIX [Concomitant]
     Dosage: 40 MG, 1X/DAY
     Route: 048
  10. PREVISCAN [Concomitant]
     Dosage: 0.75 DF , 1X/DAY
     Route: 048

REACTIONS (8)
  - Depressed level of consciousness [Recovered/Resolved]
  - Respiratory depression [Recovered/Resolved]
  - Miosis [Recovered/Resolved]
  - Myoclonus [Recovered/Resolved]
  - Bronchitis [Unknown]
  - General physical health deterioration [Unknown]
  - Blood pressure decreased [Unknown]
  - Pain in extremity [Unknown]
